FAERS Safety Report 12478272 (Version 1)
Quarter: 2016Q2

REPORT INFORMATION
  Report Type: Spontaneous
  Country: US (occurrence: US)
  Receive Date: 20160617
  Receipt Date: 20160617
  Transmission Date: 20160815
  Serious: Yes (Hospitalization, Other)
  Sender: FDA-Public Use
  Company Number: US-ASTRAZENECA-2016SE64537

PATIENT
  Sex: Male
  Weight: 23.6 kg

DRUGS (8)
  1. CONCERTA [Concomitant]
     Active Substance: METHYLPHENIDATE HYDROCHLORIDE
     Route: 065
  2. BENADRYL [Concomitant]
     Active Substance: DIPHENHYDRAMINE HYDROCHLORIDE
     Indication: SLEEP DISORDER
     Route: 065
  3. BYARIN [Concomitant]
     Route: 065
  4. SEROQUEL XR [Suspect]
     Active Substance: QUETIAPINE FUMARATE
     Indication: SLEEP DISORDER
     Route: 048
     Dates: start: 201510, end: 201602
  5. MULTIVITAMIN [Concomitant]
     Active Substance: VITAMINS
     Route: 065
  6. VITAMIN D3 [Concomitant]
     Active Substance: CHOLECALCIFEROL
     Route: 065
  7. INTUNZA [Concomitant]
     Route: 065
  8. VITAMIN C [Concomitant]
     Active Substance: ASCORBIC ACID
     Route: 065

REACTIONS (16)
  - Clonus [Unknown]
  - Insomnia [Unknown]
  - Aggression [Unknown]
  - Feeling cold [Unknown]
  - Excessive eye blinking [Unknown]
  - Off label use [Unknown]
  - Migraine [Unknown]
  - Vomiting [Unknown]
  - Tardive dyskinesia [Unknown]
  - Suicidal ideation [Unknown]
  - Eye movement disorder [Unknown]
  - Tic [Unknown]
  - Glare [Unknown]
  - Somnolence [Unknown]
  - Irritability [Unknown]
  - Product use issue [Unknown]
